FAERS Safety Report 24874107 (Version 1)
Quarter: 2025Q1

REPORT INFORMATION
  Report Type: Spontaneous
  Country: US (occurrence: None)
  Receive Date: 20250122
  Receipt Date: 20250122
  Transmission Date: 20250408
  Serious: No
  Sender: FDA-CTU
  Company Number: None

PATIENT
  Age: 11 Year
  Sex: Female

DRUGS (2)
  1. ALVAIZ [Suspect]
     Active Substance: ELTROMBOPAG CHOLINE
     Indication: Immune thrombocytopenia
     Dosage: FREQUENCY : DAILY;?
     Route: 048
     Dates: start: 202501
  2. PRMACTA [Concomitant]

REACTIONS (2)
  - Exposure to extreme temperature [None]
  - Product physical issue [None]

NARRATIVE: CASE EVENT DATE: 20250121
